FAERS Safety Report 9231623 (Version 4)
Quarter: 2013Q2

REPORT INFORMATION
  Report Type: Spontaneous
  Country: JP (occurrence: JP)
  Receive Date: 20130415
  Receipt Date: 20130503
  Transmission Date: 20140414
  Serious: Yes (Death, Other)
  Sender: FDA-Public Use
  Company Number: JP-JNJFOC-20130406259

PATIENT
  Sex: 0

DRUGS (10)
  1. DOXORUBICIN [Suspect]
     Indication: BREAST CANCER
     Route: 042
  2. DOXORUBICIN [Suspect]
     Indication: BREAST CANCER
     Dosage: 4 CYCLES
     Route: 042
  3. DOXORUBICIN [Suspect]
     Indication: BREAST CANCER
     Dosage: 4 CYCLES
     Route: 065
  4. DOXORUBICIN [Suspect]
     Indication: BREAST CANCER
     Route: 065
  5. PACLITAXEL [Suspect]
     Indication: BREAST CANCER
     Dosage: WEEKLY
     Route: 065
  6. EPIRUBICIN [Suspect]
     Indication: BREAST CANCER
     Dosage: 4 CYCLES
     Route: 065
  7. DOCETAXEL [Suspect]
     Indication: BREAST CANCER
     Route: 065
  8. 5-FLUOROURACIL [Suspect]
     Indication: BREAST CANCER
     Route: 065
  9. CYCLOPHOSPHAMIDE [Suspect]
     Indication: BREAST CANCER
     Dosage: 4 CYCLES
     Route: 065
  10. CYCLOPHOSPHAMIDE [Suspect]
     Indication: BREAST CANCER
     Dosage: 4 CYCLES
     Route: 065

REACTIONS (5)
  - Death [Fatal]
  - Breast cancer recurrent [Unknown]
  - Febrile neutropenia [Unknown]
  - Neuropathy peripheral [Unknown]
  - Disease progression [Unknown]
